FAERS Safety Report 23546638 (Version 3)
Quarter: 2024Q2

REPORT INFORMATION
  Report Type: Report from Study
  Country: US (occurrence: US)
  Receive Date: 20240221
  Receipt Date: 20240408
  Transmission Date: 20240716
  Serious: Yes (Hospitalization)
  Sender: FDA-Public Use
  Company Number: US-ARGENX-2024-ARGX-US000909

PATIENT

DRUGS (4)
  1. VYVGART [Suspect]
     Active Substance: EFGARTIGIMOD ALFA-FCAB
     Indication: Myasthenia gravis
     Dosage: UNK,
     Route: 042
     Dates: start: 20230601
  2. VYVGART [Suspect]
     Active Substance: EFGARTIGIMOD ALFA-FCAB
     Dosage: 400 MG/ 20 ML, FOR 4 WEEKS
     Route: 042
     Dates: start: 20231004
  3. Bd posiflush [Concomitant]
     Indication: Product used for unknown indication
     Dosage: 10 ML
     Route: 065
  4. SODIUM CHLORIDE [Concomitant]
     Active Substance: SODIUM CHLORIDE
     Indication: Product used for unknown indication
     Dosage: 100ML/BAG
     Route: 065

REACTIONS (4)
  - Appendicitis [Unknown]
  - Weight increased [Unknown]
  - Blepharospasm [Unknown]
  - Myasthenia gravis [Unknown]

NARRATIVE: CASE EVENT DATE: 20240301
